FAERS Safety Report 5153078-4 (Version None)
Quarter: 2006Q4

REPORT INFORMATION
  Report Type: 
  Country: None (occurrence: None)
  Receive Date: 20061117
  Receipt Date: 20060816
  Transmission Date: 20070319
  Serious: Yes (Other)
  Sender: FDA-Public Use
  Company Number: PHFR2006GB02566

PATIENT
  Sex: Male

DRUGS (1)
  1. VOLTAREN [Suspect]
     Indication: HEADACHE
     Dosage: 2 IN 24 HOURS
     Route: 030

REACTIONS (1)
  - DEAFNESS NEUROSENSORY [None]
